FAERS Safety Report 5947447-X (Version None)
Quarter: 2008Q4

REPORT INFORMATION
  Report Type: 
  Country: None (occurrence: None)
  Receive Date: 20081110
  Receipt Date: 20081029
  Transmission Date: 20090506
  Serious: Yes (Hospitalization, Other)
  Sender: FDA-Public Use
  Company Number: PHHY2008BR26710

PATIENT
  Sex: Male

DRUGS (2)
  1. DIOVAN [Suspect]
     Indication: HYPERTENSION
     Dosage: 1 TABLET DAILY
     Route: 048
  2. GLYBURIDE [Concomitant]
     Indication: DIABETES MELLITUS
     Dosage: 1 TABLET DAILY
     Route: 048

REACTIONS (7)
  - ABDOMINAL PAIN UPPER [None]
  - APPENDICECTOMY [None]
  - BLADDER OPERATION [None]
  - BLINDNESS [None]
  - CATARACT OPERATION [None]
  - DEAFNESS [None]
  - EYE INFECTION [None]
